FAERS Safety Report 5525483-5 (Version None)
Quarter: 2007Q4

REPORT INFORMATION
  Report Type: 
  Country: None (occurrence: None)
  Receive Date: 20071120
  Receipt Date: 20071113
  Transmission Date: 20080405
  Serious: Yes (Other)
  Sender: FDA-Public Use
  Company Number: 2007335159

PATIENT
  Age: 27 Year
  Sex: Male
  Weight: 81.6475 kg

DRUGS (2)
  1. COOL MINT LISTERINE (MENTHOL, METHYL SALICYLATE, EUCALYPTOL, THYMOL) [Suspect]
     Dosage: ENTIRE BOTTLE, ORAL
     Route: 048
     Dates: start: 20071113
  2. ALCOHOL (ALCOHOL) [Suspect]

REACTIONS (3)
  - ALCOHOL USE [None]
  - INCORRECT DOSE ADMINISTERED [None]
  - INCORRECT ROUTE OF DRUG ADMINISTRATION [None]
